FAERS Safety Report 8422056-1 (Version None)
Quarter: 2012Q2

REPORT INFORMATION
  Report Type: 
  Country: None (occurrence: None)
  Receive Date: 20120531
  Receipt Date: 20120523
  Transmission Date: 20120825
  Serious: No
  Sender: FDA-Public Use
  Company Number: US-PFIZER INC-2012125245

PATIENT
  Sex: Male
  Weight: 86 kg

DRUGS (5)
  1. NORCO [Concomitant]
     Indication: PAIN
     Dosage: 325/10 MG, UNK
  2. CLINDAMYCIN PHOSPHATE [Suspect]
     Indication: FOLLICULITIS
     Dosage: UNK, TWO TIMES A DAY
     Route: 061
     Dates: start: 20120403
  3. CELEBREX [Concomitant]
     Indication: ARTHRITIS
     Dosage: 200 MG, UNK
  4. SOMA [Concomitant]
     Indication: MUSCLE SPASMS
     Dosage: 350 MG, UNK
  5. RESTORIL [Concomitant]
     Dosage: 30 MG, UNK

REACTIONS (1)
  - RASH PAPULAR [None]
